FAERS Safety Report 13685674 (Version 1)
Quarter: 2017Q2

REPORT INFORMATION
  Report Type: Spontaneous
  Country: JP (occurrence: JP)
  Receive Date: 20170623
  Receipt Date: 20170623
  Transmission Date: 20170830
  Serious: Yes (Death)
  Sender: FDA-Public Use
  Company Number: JP-PFIZER INC-2017015832

PATIENT
  Age: 30 Year
  Sex: Female

DRUGS (16)
  1. CYCLOSPORIN [Concomitant]
     Active Substance: CYCLOSPORINE
     Indication: GRANULOMATOSIS WITH POLYANGIITIS
  2. TRIMETHOPRIM. [Suspect]
     Active Substance: TRIMETHOPRIM
     Indication: GRANULOMATOSIS WITH POLYANGIITIS
  3. CYCLOPHOSPHAMIDE. [Concomitant]
     Active Substance: CYCLOPHOSPHAMIDE
     Indication: GRANULOMATOSIS WITH POLYANGIITIS
  4. PREDNISOLONE. [Suspect]
     Active Substance: PREDNISOLONE
     Indication: GRANULOMATOSIS WITH POLYANGIITIS
     Dosage: 50 MG, DAILY
  5. SULFAMETHOXAZOLE [Suspect]
     Active Substance: SULFAMETHOXAZOLE
     Indication: PULMONARY GRANULOMA
     Dosage: 800 MG, DAILY
  6. CYCLOSPORIN [Concomitant]
     Active Substance: CYCLOSPORINE
     Indication: PULMONARY GRANULOMA
     Dosage: UNK
  7. METHOTREXATE SODIUM. [Suspect]
     Active Substance: METHOTREXATE SODIUM
     Indication: PULMONARY GRANULOMA
     Dosage: 15 MG, WEEKLY
  8. CYCLOPHOSPHAMIDE. [Concomitant]
     Active Substance: CYCLOPHOSPHAMIDE
     Indication: PULMONARY GRANULOMA
     Dosage: UNK
  9. PREDNISOLONE. [Suspect]
     Active Substance: PREDNISOLONE
     Indication: PULMONARY GRANULOMA
     Dosage: 13 MG, DAILY
  10. TRIMETHOPRIM. [Suspect]
     Active Substance: TRIMETHOPRIM
     Indication: PULMONARY GRANULOMA
     Dosage: 160 MG, DAILY
  11. RITUXIMAB [Suspect]
     Active Substance: RITUXIMAB
     Indication: GRANULOMATOSIS WITH POLYANGIITIS
     Dosage: UNK
  12. RITUXIMAB [Suspect]
     Active Substance: RITUXIMAB
     Indication: PULMONARY GRANULOMA
  13. INFLIXIMAB [Concomitant]
     Active Substance: INFLIXIMAB
     Indication: PULMONARY GRANULOMA
     Dosage: UNK
  14. SULFAMETHOXAZOLE [Suspect]
     Active Substance: SULFAMETHOXAZOLE
     Indication: GRANULOMATOSIS WITH POLYANGIITIS
  15. INFLIXIMAB [Concomitant]
     Active Substance: INFLIXIMAB
     Indication: GRANULOMATOSIS WITH POLYANGIITIS
  16. METHOTREXATE SODIUM. [Suspect]
     Active Substance: METHOTREXATE SODIUM
     Indication: GRANULOMATOSIS WITH POLYANGIITIS

REACTIONS (4)
  - Cytomegalovirus infection [Fatal]
  - Haemorrhage [Fatal]
  - Varicella zoster virus infection [Fatal]
  - Disseminated intravascular coagulation [Fatal]
